FAERS Safety Report 18969137 (Version 1)
Quarter: 2021Q1

REPORT INFORMATION
  Report Type: Spontaneous
  Country: FR (occurrence: FR)
  Receive Date: 20210304
  Receipt Date: 20210304
  Transmission Date: 20210420
  Serious: Yes (Other)
  Sender: FDA-Public Use
  Company Number: FR-ACCORD-218618

PATIENT
  Age: 54 Year
  Sex: Male

DRUGS (4)
  1. ALLOPURINOL. [Suspect]
     Active Substance: ALLOPURINOL
     Indication: PROPHYLAXIS
     Route: 048
     Dates: start: 20201223, end: 20210103
  2. TOPALGIC [TRAMADOL] [Suspect]
     Active Substance: TRAMADOL
     Indication: PAIN
     Dosage: 50 MG
     Route: 048
     Dates: start: 20201223, end: 20210103
  3. PANTOPRAZOLE [Suspect]
     Active Substance: PANTOPRAZOLE
     Indication: PROPHYLAXIS
     Route: 048
     Dates: start: 20201223, end: 20210104
  4. VALACICLOVIR [Suspect]
     Active Substance: VALACYCLOVIR HYDROCHLORIDE
     Indication: PROPHYLAXIS
     Route: 048
     Dates: start: 20201223, end: 20210104

REACTIONS (2)
  - Rash maculo-papular [Recovered/Resolved]
  - Pyrexia [Recovered/Resolved]

NARRATIVE: CASE EVENT DATE: 20210102
